FAERS Safety Report 20900877 (Version 3)
Quarter: 2023Q4

REPORT INFORMATION
  Report Type: Report from Study
  Country: US (occurrence: US)
  Receive Date: 20220601
  Receipt Date: 20231127
  Transmission Date: 20240110
  Serious: Yes (Other)
  Sender: FDA-Public Use
  Company Number: US-JAZZ-2022-US-018332

PATIENT
  Age: 13 Year
  Sex: Female

DRUGS (4)
  1. XYREM [Suspect]
     Active Substance: SODIUM OXYBATE
     Indication: Narcolepsy
     Dosage: UNK
  2. XYREM [Suspect]
     Active Substance: SODIUM OXYBATE
     Indication: Cataplexy
  3. XYREM [Suspect]
     Active Substance: SODIUM OXYBATE
     Indication: Somnolence
  4. CLOMIPRAMINE [Concomitant]
     Active Substance: CLOMIPRAMINE
     Dosage: UNK
     Dates: start: 20230706

REACTIONS (3)
  - Intracranial pressure increased [Unknown]
  - Seizure [Unknown]
  - Growth hormone deficiency [Unknown]

NARRATIVE: CASE EVENT DATE: 20190801
